FAERS Safety Report 11083152 (Version 1)
Quarter: 2015Q2

REPORT INFORMATION
  Report Type: Spontaneous
  Country: US (occurrence: US)
  Receive Date: 20150501
  Receipt Date: 20150501
  Transmission Date: 20150821
  Serious: No
  Sender: FDA-Public Use
  Company Number: US-ABBVIE-15P-163-1364635-00

PATIENT
  Age: 89 Year
  Sex: Male
  Weight: 95.34 kg

DRUGS (1)
  1. ANDROGEL [Suspect]
     Active Substance: TESTOSTERONE
     Indication: BLOOD TESTOSTERONE DECREASED
     Dosage: 2 PUMPS
     Route: 065
     Dates: start: 201501

REACTIONS (2)
  - Sluggishness [Not Recovered/Not Resolved]
  - Product physical consistency issue [Not Recovered/Not Resolved]

NARRATIVE: CASE EVENT DATE: 201503
